FAERS Safety Report 6742055-5 (Version None)
Quarter: 2010Q2

REPORT INFORMATION
  Report Type: 
  Country: None (occurrence: None)
  Receive Date: 20100526
  Receipt Date: 20100520
  Transmission Date: 20101027
  Serious: Yes (Hospitalization)
  Sender: FDA-Public Use
  Company Number: IT-TEVA-235405ISR

PATIENT
  Sex: Male

DRUGS (2)
  1. LORAZEPAM [Suspect]
  2. RISPERIDONE [Suspect]

REACTIONS (1)
  - HEPATITIS [None]
